FAERS Safety Report 17688855 (Version 2)
Quarter: 2020Q2

REPORT INFORMATION
  Report Type: Spontaneous
  Country: SI (occurrence: SI)
  Receive Date: 20200421
  Receipt Date: 20200626
  Transmission Date: 20200714
  Serious: Yes (Hospitalization, Disabling, Other)
  Sender: FDA-Public Use
  Company Number: SI-AMGEN-SVNSP2020063426

PATIENT
  Age: 80 Year
  Sex: Female
  Weight: 78 kg

DRUGS (7)
  1. ANALGIN [METAMIZOLE SODIUM] [Concomitant]
     Dosage: UNK
  2. LEKADOL [Concomitant]
     Active Substance: ACETAMINOPHEN
     Dosage: UNK
  3. ROTICOX [Concomitant]
     Dosage: UNK
  4. KVENTIAX [Concomitant]
     Active Substance: QUETIAPINE FUMARATE
     Dosage: 25 MILLIGRAM IN THE EVENING
  5. PROLIA [Suspect]
     Active Substance: DENOSUMAB
     Indication: PRODUCT USED FOR UNKNOWN INDICATION
     Dosage: 60 MILLIGRAM, Q6MO
     Route: 058
     Dates: start: 20141127
  6. SOBYCOR [Concomitant]
     Active Substance: BISOPROLOL FUMARATE
     Dosage: 2.5 MILLIGRAM, QD
  7. AMLESSA [Concomitant]
     Active Substance: AMLODIPINE BESYLATE\PERINDOPRIL ERBUMINE
     Dosage: 4/5MG

REACTIONS (2)
  - Lumbar vertebral fracture [Unknown]
  - Pain [Unknown]

NARRATIVE: CASE EVENT DATE: 202001
